FAERS Safety Report 24584897 (Version 1)
Quarter: 2024Q4

REPORT INFORMATION
  Report Type: Spontaneous
  Country: US (occurrence: None)
  Receive Date: 20241106
  Receipt Date: 20241106
  Transmission Date: 20250115
  Serious: Yes (Hospitalization)
  Sender: Public
  Company Number: None

PATIENT
  Age: 87 Year
  Sex: Female

DRUGS (1)
  1. LENALIDOMIDE [Suspect]
     Active Substance: LENALIDOMIDE
     Indication: Plasma cell myeloma
     Dosage: OTHER FREQUENCY : 1TIMEDAILYFOR21DAYSTHEN9DAYSOFF;?
     Route: 048

REACTIONS (4)
  - Mental status changes [None]
  - Electrolyte imbalance [None]
  - Hepatic enzyme increased [None]
  - Transfusion [None]

NARRATIVE: CASE EVENT DATE: 20241101
